FAERS Safety Report 20829689 (Version 1)
Quarter: 2022Q2

REPORT INFORMATION
  Report Type: Spontaneous
  Country: US (occurrence: US)
  Receive Date: 20220513
  Receipt Date: 20220513
  Transmission Date: 20220721
  Serious: No
  Sender: FDA-Public Use
  Company Number: US-PFIZER INC-202101453557

PATIENT
  Sex: Female

DRUGS (5)
  1. METHYLPREDNISOLONE [Suspect]
     Active Substance: METHYLPREDNISOLONE
     Dosage: 4 MG, DOSE PACK
     Dates: start: 202107
  2. ERYTHROMYCIN [Suspect]
     Active Substance: ERYTHROMYCIN
     Dosage: 250 MG
     Dates: start: 202107
  3. CHARCOAL [Concomitant]
     Active Substance: ACTIVATED CHARCOAL
     Dosage: UNK
  4. GARLIC [Concomitant]
     Active Substance: GARLIC
     Dosage: UNK
  5. MSM [METHYLSULFONYLMETHANE] [Concomitant]
     Dosage: UNK

REACTIONS (2)
  - Feeling hot [Unknown]
  - Peripheral swelling [Unknown]

NARRATIVE: CASE EVENT DATE: 20210901
